FAERS Safety Report 15436300 (Version 1)
Quarter: 2018Q3

REPORT INFORMATION
  Report Type: Spontaneous
  Country: US (occurrence: US)
  Receive Date: 20180924
  Receipt Date: 20180924
  Transmission Date: 20181010
  Serious: Yes (Other)
  Sender: FDA-Public Use
  Company Number: None

PATIENT
  Sex: Female

DRUGS (1)
  1. BEVESPI AEROSPHERE [Suspect]
     Active Substance: FORMOTEROL FUMARATE\GLYCOPYRROLATE
     Indication: CHRONIC OBSTRUCTIVE PULMONARY DISEASE
     Dosage: ?          QUANTITY:2 PUFF(S);?
     Route: 055
     Dates: start: 20160510

REACTIONS (4)
  - Muscular weakness [None]
  - Pollakiuria [None]
  - Muscle spasms [None]
  - Glaucoma [None]

NARRATIVE: CASE EVENT DATE: 20160610
